FAERS Safety Report 16298661 (Version 2)
Quarter: 2019Q2

REPORT INFORMATION
  Report Type: Spontaneous
  Country: CZ (occurrence: CZ)
  Receive Date: 20190510
  Receipt Date: 20190601
  Transmission Date: 20190711
  Serious: Yes (Other)
  Sender: FDA-Public Use
  Company Number: CZ-AUROBINDO-AUR-APL-2019-024858

PATIENT

DRUGS (16)
  1. PERINDOPRIL/INDAPAMIDE [Concomitant]
     Active Substance: INDAPAMIDE\PERINDOPRIL
     Indication: HYPERTENSION
     Dosage: UNK, (10 MG/2.5 MG)
     Route: 065
  2. AMLODIPINE;ATORVASTATIN [Concomitant]
     Indication: DYSLIPIDAEMIA
     Dosage: UNK (10MG/10 MG)
     Route: 065
  3. METFORMIN [Suspect]
     Active Substance: METFORMIN HYDROCHLORIDE
     Indication: TYPE 2 DIABETES MELLITUS
     Dosage: 500 MILLIGRAM
     Route: 065
  4. INSULIN HUMAN [Concomitant]
     Active Substance: INSULIN HUMAN
     Indication: DIABETES MELLITUS
     Dosage: UNK, STOPPED YEAR 2011
     Route: 065
  5. BOPINDOLOL [Concomitant]
     Active Substance: BOPINDOLOL
     Indication: HYPERTENSION
     Dosage: UNK
     Route: 065
  6. RILMENIDINE [Concomitant]
     Active Substance: RILMENIDINE
     Indication: HYPERTENSION
     Dosage: 1 MILLIGRAM, UNK
     Route: 065
  7. GLIQUIDONE [Suspect]
     Active Substance: GLIQUIDONE
     Indication: TYPE 2 DIABETES MELLITUS
     Dosage: UNK
     Route: 065
  8. INSULIN [Suspect]
     Active Substance: INSULIN NOS
     Indication: DIABETES MELLITUS
     Dosage: UNK (36 U IN THE MORNING AND 6 U IN THE EVENING)
     Route: 065
  9. METFORMIN [Suspect]
     Active Substance: METFORMIN HYDROCHLORIDE
     Dosage: 1000 MILLIGRAM (DOSE INCREASED)
     Route: 065
  10. METFORMIN [Suspect]
     Active Substance: METFORMIN HYDROCHLORIDE
     Dosage: 2000 MILLIGRAM, ONCE A DAY, 2X 1000MG
     Route: 065
  11. GLIQUIDONE [Suspect]
     Active Substance: GLIQUIDONE
     Indication: DIABETES MELLITUS
  12. INSULIN [Suspect]
     Active Substance: INSULIN NOS
     Indication: TYPE 2 DIABETES MELLITUS
     Dosage: UNK (36 U IN THE MORNING AND 10 U IN THE EVENING)
     Route: 065
  13. ACETYLSALICYLIC ACID [Concomitant]
     Active Substance: ASPIRIN
     Indication: HYPERTENSION
     Dosage: 100 MILLIGRAM, UNK
     Route: 065
  14. AMLODIPINE;ATORVASTATIN [Concomitant]
     Indication: HYPERTENSION
  15. BISOPROLOL [Concomitant]
     Active Substance: BISOPROLOL
     Indication: HYPERTENSION
     Dosage: 5 MILLIGRAM, UNK
     Route: 065
  16. INSULIN GLARGINE [Concomitant]
     Active Substance: INSULIN GLARGINE
     Indication: TYPE 2 DIABETES MELLITUS
     Dosage: UNK
     Route: 065

REACTIONS (4)
  - Diabetic metabolic decompensation [Recovering/Resolving]
  - Glycosylated haemoglobin increased [Unknown]
  - Palpitations [Unknown]
  - Diabetes mellitus [Recovering/Resolving]

NARRATIVE: CASE EVENT DATE: 2011
